FAERS Safety Report 5833827-X (Version None)
Quarter: 2008Q3

REPORT INFORMATION
  Report Type: 
  Country: None (occurrence: None)
  Receive Date: 20080801
  Receipt Date: 20080724
  Transmission Date: 20090109
  Serious: Yes (Death, Hospitalization, Disabling)
  Sender: FDA-Public Use
  Company Number: 163-21880-08070666

PATIENT
  Age: 79 Year
  Sex: Male
  Weight: 71.36 kg

DRUGS (4)
  1. REVLIMID [Suspect]
     Indication: MULTIPLE MYELOMA
     Dosage: 25 MG, DAILY D1-28, ORAL
     Route: 048
     Dates: start: 20060101, end: 20060513
  2. REVLIMID [Suspect]
     Indication: MULTIPLE MYELOMA
     Dosage: 25 MG, DAILY D1-28, ORAL
     Route: 048
     Dates: start: 20060424
  3. DEXAMETHASONE TAB [Suspect]
     Indication: MULTIPLE MYELOMA
     Dosage: 40 MG, D1-4, 9-12, 17-20, ORAL
     Route: 048
     Dates: start: 20060424, end: 20060513
  4. SOLU-MEDROL [Concomitant]

REACTIONS (8)
  - BACK PAIN [None]
  - BLOOD CREATININE INCREASED [None]
  - DISEASE PROGRESSION [None]
  - GENERAL PHYSICAL HEALTH DETERIORATION [None]
  - HAEMOGLOBIN DECREASED [None]
  - NEUTROPHIL COUNT DECREASED [None]
  - RENAL FAILURE [None]
  - SUDDEN DEATH [None]
